FAERS Safety Report 7030532-1 (Version None)
Quarter: 2010Q4

REPORT INFORMATION
  Report Type: 
  Country: None (occurrence: None)
  Receive Date: 20101004
  Receipt Date: 20100922
  Transmission Date: 20110411
  Serious: Yes (Death, Hospitalization)
  Sender: FDA-Public Use
  Company Number: DSM-2010-01324

PATIENT
  Age: 59 Year
  Sex: Male
  Weight: 108 kg

DRUGS (3)
  1. OLMETEC PLUS (HYDROCHLOROTHIAZIDE, OLMESARTAN MEDOXOMIL) (HYDROCHLOROT [Suspect]
     Indication: HYPERTENSION
     Dosage: 40/12.5 MG (1 IN 1 D), ORAL
     Route: 048
     Dates: start: 20100621
  2. LISINOPRIL [Concomitant]
  3. METOHEXAL SUCC (METOPROLOL SUCCINATE) (METOPROLOL SUCCINATE) [Concomitant]

REACTIONS (1)
  - DEATH [None]
